FAERS Safety Report 10188440 (Version 2)
Quarter: 2014Q2

REPORT INFORMATION
  Report Type: Spontaneous
  Country: US (occurrence: US)
  Receive Date: 20140522
  Receipt Date: 20140522
  Transmission Date: 20141212
  Serious: Yes (Other)
  Sender: FDA-Public Use
  Company Number: US-SA-2014SA043362

PATIENT
  Sex: Female

DRUGS (6)
  1. DEMEROL [Suspect]
     Indication: PRODUCT USED FOR UNKNOWN INDICATION
     Route: 042
     Dates: start: 19990629, end: 19990703
  2. ASA [Concomitant]
     Dates: start: 1985
  3. TYLENOL [Concomitant]
     Indication: HEADACHE
     Dates: start: 1980
  4. METFORMIN [Concomitant]
     Indication: DIABETES MELLITUS
     Dates: start: 1996, end: 2009
  5. ALDACTONE [Concomitant]
     Indication: FLUID IMBALANCE
     Dates: start: 1994
  6. NEXIUM [Concomitant]
     Indication: GASTROOESOPHAGEAL REFLUX DISEASE
     Dates: start: 1990, end: 1995

REACTIONS (6)
  - Amnesia [Unknown]
  - Hallucination [Unknown]
  - Visual impairment [Unknown]
  - Nausea [Unknown]
  - Vomiting [Unknown]
  - Hypersensitivity [Unknown]
